FAERS Safety Report 16079991 (Version 1)
Quarter: 2019Q1

REPORT INFORMATION
  Report Type: Report from Study
  Country: US (occurrence: US)
  Receive Date: 20190315
  Receipt Date: 20190315
  Transmission Date: 20190418
  Serious: Yes (Hospitalization)
  Sender: FDA-Public Use
  Company Number: US-ACTELION-A-US2017-149198

PATIENT
  Age: 60 Year
  Sex: Female
  Weight: 107.94 kg

DRUGS (21)
  1. LOPERAMIDE [Concomitant]
     Active Substance: LOPERAMIDE
     Indication: DIARRHOEA
     Dosage: 2 MG, EVERY 24 HRS, PRN
     Route: 048
  2. MUCINEX [Concomitant]
     Active Substance: GUAIFENESIN
     Indication: PULMONARY CONGESTION
  3. OXYGEN. [Concomitant]
     Active Substance: OXYGEN
     Dosage: 3-5 L CONTINUOUS
  4. RIVAROXABAN [Concomitant]
     Active Substance: RIVAROXABAN
     Dosage: 20 MG, QD
     Route: 048
     Dates: start: 20171129
  5. UPTRAVI [Suspect]
     Active Substance: SELEXIPAG
     Dosage: 1200 MCG, BID
     Route: 048
  6. XARELTO [Concomitant]
     Active Substance: RIVAROXABAN
     Dosage: 20 MG (TITER), QD
     Route: 048
  7. GLIPIZIDE. [Concomitant]
     Active Substance: GLIPIZIDE
     Dosage: 5 MG, QD
     Route: 048
  8. UPTRAVI [Suspect]
     Active Substance: SELEXIPAG
     Indication: PULMONARY HYPERTENSION
     Dosage: 400 MCG, BID
     Route: 048
  9. UPTRAVI [Suspect]
     Active Substance: SELEXIPAG
     Dosage: 800 MCG, BID
     Route: 048
  10. SILDENAFIL. [Concomitant]
     Active Substance: SILDENAFIL
     Dosage: 20 MG, TID
     Route: 048
  11. ALBUTEROL. [Concomitant]
     Active Substance: ALBUTEROL
     Dosage: 2.5 MG/3 ML EVERY 6 HRS AS NEEDED
     Route: 055
  12. UPTRAVI [Suspect]
     Active Substance: SELEXIPAG
     Dosage: 1000 MCG, BID
     Route: 048
     Dates: start: 20170221
  13. TORSEMIDE. [Concomitant]
     Active Substance: TORSEMIDE
     Dosage: 20 MG, QD
     Route: 048
  14. UPTRAVI [Suspect]
     Active Substance: SELEXIPAG
     Dosage: 600 MCG, BID
     Route: 048
     Dates: start: 20161222
  15. ALBUTEROL. [Concomitant]
     Active Substance: ALBUTEROL
     Indication: WHEEZING
     Dosage: 90 MCG, 2 PUFFS QID PRN
     Route: 055
  16. MUCINEX [Concomitant]
     Active Substance: GUAIFENESIN
     Indication: COUGH
     Dosage: 600 MG,EVERY 12 HRS, PRN
     Route: 048
  17. TORSEMIDE. [Concomitant]
     Active Substance: TORSEMIDE
     Dosage: 20 MG, TID
  18. UPTRAVI [Suspect]
     Active Substance: SELEXIPAG
     Dosage: 200 MCG, BID
     Route: 048
  19. UPTRAVI [Suspect]
     Active Substance: SELEXIPAG
     Dosage: 600 IN AM, 800MCG IN PM
     Route: 048
  20. ALBUTEROL. [Concomitant]
     Active Substance: ALBUTEROL
     Dosage: PRN 5 X A DAY
  21. EUCERIN [Concomitant]
     Active Substance: ENSULIZOLE\EUCERIN\OCTINOXATE\OCTISALATE\TITANIUM DIOXIDE\ZINC OXIDE
     Indication: DRY SKIN
     Dosage: 1 APPLICATION, BID
     Route: 061

REACTIONS (26)
  - Pain in jaw [Unknown]
  - Hospitalisation [Unknown]
  - Product dose omission [Unknown]
  - Fluid retention [Unknown]
  - Acute kidney injury [Recovering/Resolving]
  - Gout [Recovered/Resolved]
  - Skin candida [Recovering/Resolving]
  - Urine output decreased [Recovering/Resolving]
  - Fluid overload [Recovering/Resolving]
  - Influenza like illness [Recovered/Resolved]
  - Ventricular tachycardia [Recovered/Resolved]
  - Nodal arrhythmia [Recovering/Resolving]
  - Swelling [Unknown]
  - Oxygen therapy [Unknown]
  - Acute left ventricular failure [Recovering/Resolving]
  - Upper respiratory tract infection [Recovering/Resolving]
  - Orthopnoea [Recovering/Resolving]
  - Hypoxia [Recovered/Resolved]
  - Dyspnoea [Recovering/Resolving]
  - Weight increased [Recovering/Resolving]
  - Headache [Unknown]
  - Condition aggravated [Recovering/Resolving]
  - Respiratory failure [Recovered/Resolved]
  - Diarrhoea [Unknown]
  - Treatment noncompliance [Unknown]
  - Decubitus ulcer [Recovering/Resolving]

NARRATIVE: CASE EVENT DATE: 20180123
